FAERS Safety Report 8892207 (Version 2)
Quarter: 2013Q2

REPORT INFORMATION
  Report Type: Spontaneous
  Country: US (occurrence: US)
  Receive Date: 20121107
  Receipt Date: 20130619
  Transmission Date: 20140414
  Serious: Yes (Death, Life-Threatening, Other)
  Sender: FDA-Public Use
  Company Number: US-BAYER-2012-116735

PATIENT
  Sex: Female

DRUGS (2)
  1. ACETYLSALICYLIC ACID [Suspect]
     Indication: ANTIPLATELET THERAPY
     Dosage: DAILY DOSE 325 MG
     Route: 048
  2. CLOPIDOGREL [Interacting]
     Indication: ANTIPLATELET THERAPY
     Dosage: DAILY DOSE 75 MG
     Route: 048

REACTIONS (5)
  - Cerebral haemorrhage [Fatal]
  - Hemiparesis [Fatal]
  - Unresponsive to stimuli [Fatal]
  - Arterial spasm [Recovered/Resolved]
  - Drug interaction [None]
